FAERS Safety Report 5001727-3 (Version None)
Quarter: 2006Q2

REPORT INFORMATION
  Report Type: 
  Country: None (occurrence: None)
  Receive Date: 20060515
  Receipt Date: 20060424
  Transmission Date: 20061013
  Serious: Yes (Hospitalization, Other)
  Sender: FDA-Public Use
  Company Number: CA-AMGEN-US177388

PATIENT
  Sex: Male

DRUGS (4)
  1. ARANESP [Suspect]
     Indication: RENAL FAILURE CHRONIC
     Route: 058
     Dates: start: 20060412
  2. DOMPERIDONE [Concomitant]
  3. FUROSEMIDE [Concomitant]
  4. SODIUM CHLORIDE [Concomitant]

REACTIONS (1)
  - PARTIAL SEIZURES [None]
